FAERS Safety Report 10005417 (Version 1)
Quarter: 2014Q1

REPORT INFORMATION
  Report Type: Spontaneous
  Country: ES (occurrence: DE)
  Receive Date: 20140312
  Receipt Date: 20140312
  Transmission Date: 20141002
  Serious: Yes (Death)
  Sender: FDA-Public Use
  Company Number: DE-FRI-1000054560

PATIENT
  Sex: Male

DRUGS (1)
  1. ACLIDINIUM [Suspect]

REACTIONS (1)
  - Death [Fatal]
